FAERS Safety Report 11320739 (Version 4)
Quarter: 2018Q2

REPORT INFORMATION
  Report Type: Spontaneous
  Country: FR (occurrence: FR)
  Receive Date: 20150729
  Receipt Date: 20180424
  Transmission Date: 20180711
  Serious: Yes (Hospitalization, Other)
  Sender: FDA-Public Use
  Company Number: FR-PFIZER INC-2015247722

PATIENT
  Age: 41 Year
  Sex: Female
  Weight: 64 kg

DRUGS (6)
  1. MIANSERINE [Concomitant]
     Active Substance: MIANSERIN HYDROCHLORIDE
     Indication: DEPRESSION
     Dosage: 30 MG, DAILY
     Route: 048
     Dates: start: 2014, end: 20150715
  2. IMOVANE [Concomitant]
     Active Substance: ZOPICLONE
     Dosage: 10 MG, 1X/DAY:IN EVENINGS
     Route: 048
     Dates: start: 2014
  3. MIANSERINE [Concomitant]
     Active Substance: MIANSERIN HYDROCHLORIDE
     Dosage: 20 MG, DAILY
     Route: 048
     Dates: start: 20150716
  4. ATHYMIL [Concomitant]
     Active Substance: MIANSERIN HYDROCHLORIDE
     Indication: DEPRESSION
     Dosage: 30 MG IN EVENINGS
  5. ABILIFY [Suspect]
     Active Substance: ARIPIPRAZOLE
     Dosage: 10 MG DAILY IN THE MORNING
     Route: 048
     Dates: start: 2014, end: 20150716
  6. EFFEXOR LP [Suspect]
     Active Substance: VENLAFAXINE HYDROCHLORIDE
     Dosage: 3 CAPSULES OF 75 MG DAILY
     Route: 048
     Dates: start: 2014

REACTIONS (8)
  - Fall [Unknown]
  - Inflammation [Unknown]
  - Rhabdomyolysis [Recovering/Resolving]
  - Hepatocellular injury [Unknown]
  - Transaminases increased [Unknown]
  - Musculoskeletal pain [Unknown]
  - Blood creatine phosphokinase increased [Recovering/Resolving]
  - Contusion [Unknown]

NARRATIVE: CASE EVENT DATE: 201506
